FAERS Safety Report 22132650 (Version 1)
Quarter: 2023Q1

REPORT INFORMATION
  Report Type: Spontaneous
  Country: US (occurrence: US)
  Receive Date: 20230323
  Receipt Date: 20230323
  Transmission Date: 20230417
  Serious: Yes (Other)
  Sender: FDA-Public Use
  Company Number: US-TEVA-2023-US-2868850

PATIENT

DRUGS (1)
  1. TORSEMIDE [Suspect]
     Active Substance: TORSEMIDE
     Indication: Product used for unknown indication
     Route: 065

REACTIONS (5)
  - Blood creatinine increased [Unknown]
  - Nephroptosis [Unknown]
  - Urinary incontinence [Unknown]
  - Pollakiuria [Unknown]
  - Blister infected [Unknown]
